FAERS Safety Report 13841513 (Version 3)
Quarter: 2017Q3

REPORT INFORMATION
  Report Type: Spontaneous
  Country: US (occurrence: US)
  Receive Date: 20170807
  Receipt Date: 20170926
  Transmission Date: 20171127
  Serious: No
  Sender: FDA-Public Use
  Company Number: US-ACTELION-A-US2017-157742

PATIENT
  Age: 65 Year
  Sex: Female

DRUGS (16)
  1. LINZESS [Concomitant]
     Active Substance: LINACLOTIDE
  2. TYLENOL [Concomitant]
     Active Substance: ACETAMINOPHEN
  3. MULTIVITAMINUM [Concomitant]
  4. DULOXETINE. [Concomitant]
     Active Substance: DULOXETINE
  5. TRAMADOL. [Concomitant]
     Active Substance: TRAMADOL
  6. GLIPIZIDE. [Concomitant]
     Active Substance: GLIPIZIDE
  7. ADCIRCA [Concomitant]
     Active Substance: TADALAFIL
  8. IRON [Concomitant]
     Active Substance: IRON
  9. VOLTAREN [Concomitant]
     Active Substance: DICLOFENAC SODIUM
  10. FUROSEMIDE. [Concomitant]
     Active Substance: FUROSEMIDE
  11. JANUVIA [Concomitant]
     Active Substance: SITAGLIPTIN PHOSPHATE
  12. METFORMIN [Concomitant]
     Active Substance: METFORMIN HYDROCHLORIDE
  13. VALSARTAN. [Concomitant]
     Active Substance: VALSARTAN
  14. ALLOPURINOL. [Concomitant]
     Active Substance: ALLOPURINOL
  15. UPTRAVI [Suspect]
     Active Substance: SELEXIPAG
     Indication: PULMONARY ARTERIAL HYPERTENSION
     Dosage: 800 MCG, BID
     Route: 048
     Dates: start: 20170523
  16. AMBRISENTAN [Suspect]
     Active Substance: AMBRISENTAN
     Indication: PULMONARY ARTERIAL HYPERTENSION
     Dosage: 10 MG, QD
     Route: 065
     Dates: start: 20160802

REACTIONS (4)
  - Pain in jaw [Unknown]
  - Headache [Not Recovered/Not Resolved]
  - Trismus [Unknown]
  - Pain [Not Recovered/Not Resolved]

NARRATIVE: CASE EVENT DATE: 201705
